FAERS Safety Report 20182896 (Version 1)
Quarter: 2021Q4

REPORT INFORMATION
  Report Type: Spontaneous
  Country: CA (occurrence: CA)
  Receive Date: 20211214
  Receipt Date: 20211214
  Transmission Date: 20220303
  Serious: Yes (Hospitalization)
  Sender: FDA-Public Use
  Company Number: CA-TEVA-2021-CA-1987030

PATIENT
  Age: 72 Year
  Sex: Female
  Weight: 52.3 kg

DRUGS (4)
  1. CARBOPLATIN [Suspect]
     Active Substance: CARBOPLATIN
     Indication: Ovarian cancer
     Dates: start: 20211110, end: 20211110
  2. PLX-2853 [Suspect]
     Active Substance: PLX-2853
     Indication: Ovarian cancer
     Dosage: 80 MILLIGRAM DAILY;
     Route: 048
     Dates: start: 20211110
  3. SYNTHROID [Concomitant]
     Active Substance: LEVOTHYROXINE SODIUM
     Dates: start: 2011
  4. SENOKOT [Concomitant]
     Active Substance: SENNOSIDES

REACTIONS (2)
  - Seizure [Not Recovered/Not Resolved]
  - Dehydration [Not Recovered/Not Resolved]

NARRATIVE: CASE EVENT DATE: 20211114
